FAERS Safety Report 7209352-0 (Version None)
Quarter: 2011Q1

REPORT INFORMATION
  Report Type: 
  Country: None (occurrence: None)
  Receive Date: 20110104
  Receipt Date: 20101221
  Transmission Date: 20110831
  Serious: Yes (Death, Hospitalization)
  Sender: FDA-Public Use
  Company Number: CZ-JNJFOC-20101208057

PATIENT
  Sex: Female

DRUGS (16)
  1. METHOTREXATE [Concomitant]
  2. LOKREN [Concomitant]
  3. TENAXUM [Concomitant]
  4. FURON [Concomitant]
  5. ORTANOL [Concomitant]
  6. AMLODIPINE BESYLATE [Concomitant]
  7. BLESSIN PLUS H [Concomitant]
  8. MEDROL [Concomitant]
  9. SORBIFER [Concomitant]
  10. GOLIMUMAB [Suspect]
     Indication: RHEUMATOID ARTHRITIS
     Route: 058
  11. MILURIT [Suspect]
     Indication: PRODUCT USED FOR UNKNOWN INDICATION
  12. ACIDUM FOLICUM [Concomitant]
  13. LOZAR [Concomitant]
  14. VEROSPIRON [Concomitant]
  15. ATORVASTATIN CALCIUM [Concomitant]
     Indication: PRODUCT USED FOR UNKNOWN INDICATION
  16. HYPOTYLIN [Concomitant]

REACTIONS (3)
  - DERMATITIS ALLERGIC [None]
  - CARDIOPULMONARY FAILURE [None]
  - RENAL FAILURE ACUTE [None]
